FAERS Safety Report 8862765 (Version 1)
Quarter: 2012Q4

REPORT INFORMATION
  Report Type: 
  Country: US (occurrence: US)
  Receive Date: 20121026
  Receipt Date: 20121026
  Transmission Date: 20130627
  Serious: No
  Sender: FDA-Public Use
  Company Number: US-ALLERGAN-1210219US

PATIENT
  Sex: Female

DRUGS (9)
  1. ALPHAGAN P [Suspect]
     Indication: OPEN ANGLE GLAUCOMA
     Dosage: 1 Gtt, bid
     Route: 047
  2. LUMIGAN [Suspect]
     Indication: OPEN ANGLE GLAUCOMA
     Dosage: 2 Gtt, UNK
     Route: 047
  3. PREDNISONE [Concomitant]
     Indication: ARTHRITIS
  4. METHOTREXATE [Concomitant]
     Indication: ARTHRITIS
  5. SYNTHROID [Concomitant]
     Indication: HYPOTHYROIDISM
  6. SYSTANE [Concomitant]
     Indication: DRY EYES
     Dosage: UNK UNK, prn
     Route: 047
  7. FOLIC ACID [Concomitant]
     Indication: DRUG USE FOR UNKNOWN INDICATION
  8. ERYTHROMYCIN OINTMENT [Concomitant]
     Indication: DRY EYES
     Dosage: UNK, qhs
  9. LORTAB                             /00607101/ [Concomitant]
     Indication: ARTHRITIS
     Dosage: UNK UNK, prn

REACTIONS (1)
  - Intraocular pressure increased [Recovered/Resolved]
